FAERS Safety Report 17377068 (Version 1)
Quarter: 2020Q1

REPORT INFORMATION
  Report Type: Spontaneous
  Country: US (occurrence: US)
  Receive Date: 20200206
  Receipt Date: 20200206
  Transmission Date: 20200409
  Serious: No
  Sender: FDA-Public Use
  Company Number: US-PFIZER INC-2020041437

PATIENT
  Age: 60 Year
  Sex: Female

DRUGS (1)
  1. IBRANCE [Suspect]
     Active Substance: PALBOCICLIB
     Indication: BREAST CANCER FEMALE
     Dosage: 100 MG, CYCLIC, (DAYS 1-21 Q (EVERY) 28 DAYS)
     Route: 048
     Dates: start: 201903

REACTIONS (1)
  - Arthralgia [Unknown]
